FAERS Safety Report 4746741-8 (Version None)
Quarter: 2005Q3

REPORT INFORMATION
  Report Type: 
  Country: None (occurrence: None)
  Receive Date: 20050817
  Receipt Date: 20050805
  Transmission Date: 20060218
  Serious: Yes (Other)
  Sender: FDA-Public Use
  Company Number: DE-GLAXOSMITHKLINE-D0047231A

PATIENT
  Age: 31 Year
  Sex: Female

DRUGS (3)
  1. MALARONE [Suspect]
     Indication: MALARIA PROPHYLAXIS
     Dosage: 1TAB PER DAY
     Route: 048
     Dates: start: 20041105, end: 20041123
  2. ALBUTEROL SULFATE HFA [Concomitant]
     Route: 055
  3. CONTRACEPTIVE [Concomitant]
     Route: 048

REACTIONS (1)
  - PANCREATITIS [None]
